FAERS Safety Report 10621310 (Version 2)
Quarter: 2014Q4

REPORT INFORMATION
  Report Type: Spontaneous
  Country: JP (occurrence: JP)
  Receive Date: 20141203
  Receipt Date: 20141203
  Transmission Date: 20150529
  Serious: Yes (Other)
  Sender: FDA-Public Use
  Company Number: JP-ORION CORPORATION ORION PHARMA-ENT 2014-0185

PATIENT
  Sex: Female

DRUGS (4)
  1. BI-SIFROL [Suspect]
     Active Substance: PRAMIPEXOLE
     Route: 048
  2. LEVODOPA [Concomitant]
     Active Substance: LEVODOPA
     Route: 065
  3. COMTAN [Suspect]
     Active Substance: ENTACAPONE
     Dosage: DOSE REDUCED
     Route: 048
  4. COMTAN [Suspect]
     Active Substance: ENTACAPONE
     Indication: PARKINSON^S DISEASE
     Route: 048

REACTIONS (4)
  - Intestinal perforation [Recovered/Resolved]
  - Appendicitis [Unknown]
  - Dropped head syndrome [None]
  - Abdominal pain [Recovered/Resolved]
